FAERS Safety Report 8935653 (Version 1)
Quarter: 2012Q4

REPORT INFORMATION
  Report Type: Spontaneous
  Country: US (occurrence: None)
  Receive Date: 20121128
  Receipt Date: 20121128
  Transmission Date: 20130627
  Serious: Yes (Hospitalization)
  Sender: FDA-Public Use
  Company Number: None

PATIENT
  Age: 60 Year
  Sex: Male
  Weight: 57.4 kg

DRUGS (1)
  1. PHENYTOIN [Suspect]
     Indication: SEIZURE
     Route: 048
     Dates: start: 20120918, end: 20121003

REACTIONS (5)
  - Oropharyngeal pain [None]
  - Dysphagia [None]
  - Lip swelling [None]
  - Rash [None]
  - Pharyngeal oedema [None]
